FAERS Safety Report 7357486-2 (Version None)
Quarter: 2011Q1

REPORT INFORMATION
  Report Type: 
  Country: None (occurrence: None)
  Receive Date: 20110317
  Receipt Date: 20110303
  Transmission Date: 20110831
  Serious: Yes (Other)
  Sender: FDA-Public Use
  Company Number: PHEH2005US10692

PATIENT
  Sex: Female
  Weight: 94.3 kg

DRUGS (30)
  1. NOVANTRONE [Concomitant]
  2. FEMARA [Concomitant]
  3. AROMASIN [Concomitant]
  4. SYNTHROID [Concomitant]
     Indication: AUTOIMMUNE THYROIDITIS
     Dosage: 0.015 MG, QD
  5. AMOXICILLIN [Concomitant]
  6. ZOMETA [Suspect]
     Dosage: 4MG Q8WKS
     Dates: start: 20040501, end: 20041001
  7. THIOTEPA [Concomitant]
  8. HERBAL EXTRACTS NOS [Concomitant]
  9. ATIVAN [Concomitant]
     Indication: ANXIETY
     Dosage: 1MG Q6H, PRN
  10. LEVOTHYROXINE [Concomitant]
  11. TAXOL [Concomitant]
  12. CYTOXAN [Concomitant]
  13. NOLVADEX [Concomitant]
  14. TAMOXIFEN [Concomitant]
     Dosage: 20 MG, QD
  15. AREDIA [Suspect]
     Indication: METASTASES TO BONE
     Dosage: 90 MG, QMO
     Dates: start: 19990623, end: 19990801
  16. ADRIAMYCIN [Concomitant]
  17. MULTIVITAMIN [Concomitant]
  18. CHLORHEXIDINE GLUCONATE [Concomitant]
  19. HERCEPTIN [Concomitant]
  20. THERATOPE [Concomitant]
     Indication: BREAST CANCER
     Dosage: 6 DOSES
     Dates: start: 20000301, end: 20001101
  21. DOLOBID [Concomitant]
  22. ZOMETA [Suspect]
     Indication: METASTASES TO BONE
     Dosage: 4 MG, QMO
     Dates: start: 20020321, end: 20040417
  23. ZOLOFT [Concomitant]
     Dosage: 50 MG, QD
  24. ASPIRIN [Concomitant]
  25. AREDIA [Suspect]
     Dosage: 90 MG, QMO
     Dates: start: 19991101, end: 20020221
  26. CALCIUM [Concomitant]
  27. METHIMAZOLE [Concomitant]
     Dosage: 10MG, BID
  28. VENLAFAXINE [Concomitant]
  29. VALIUM [Concomitant]
  30. LEVAQUIN [Concomitant]

REACTIONS (55)
  - OSTEOMYELITIS [None]
  - RESORPTION BONE INCREASED [None]
  - ORAL DISCOMFORT [None]
  - FATIGUE [None]
  - DYSPNOEA EXERTIONAL [None]
  - PALATAL DISORDER [None]
  - BONE DISORDER [None]
  - TOOTH DISORDER [None]
  - PERIODONTAL DISEASE [None]
  - HEPATIC STEATOSIS [None]
  - OTORRHOEA [None]
  - HOT FLUSH [None]
  - ANXIETY [None]
  - MYALGIA [None]
  - LOOSE TOOTH [None]
  - PRIMARY SEQUESTRUM [None]
  - ACTINOMYCOSIS [None]
  - INFLAMMATION [None]
  - PURULENT DISCHARGE [None]
  - GASTROINTESTINAL DISORDER [None]
  - COMPUTERISED TOMOGRAM ABNORMAL [None]
  - HYPERTENSION [None]
  - TOOTHACHE [None]
  - ADENOMA BENIGN [None]
  - TOOTH FRACTURE [None]
  - BONE FORMATION INCREASED [None]
  - ORAL DISCHARGE [None]
  - KLEBSIELLA INFECTION [None]
  - TOOTH ABSCESS [None]
  - PYREXIA [None]
  - MALAISE [None]
  - TOOTH INFECTION [None]
  - DIVERTICULUM INTESTINAL [None]
  - OSTEONECROSIS OF JAW [None]
  - GINGIVAL OEDEMA [None]
  - MORGANELLA INFECTION [None]
  - FISTULA [None]
  - ATELECTASIS [None]
  - ANAEMIA [None]
  - INFECTION [None]
  - HYPOTHYROIDISM [None]
  - LIBIDO DECREASED [None]
  - PERIODONTITIS [None]
  - SOFT TISSUE DISORDER [None]
  - OTITIS EXTERNA [None]
  - GINGIVAL DISORDER [None]
  - MELANOSIS COLI [None]
  - ERYTHEMA [None]
  - SWELLING [None]
  - SMEAR CERVIX ABNORMAL [None]
  - WEIGHT INCREASED [None]
  - ALOPECIA [None]
  - TOOTH LOSS [None]
  - PARAESTHESIA [None]
  - BRUXISM [None]
